FAERS Safety Report 5084723-X (Version None)
Quarter: 2006Q3

REPORT INFORMATION
  Report Type: 
  Country: None (occurrence: None)
  Receive Date: 20060815
  Receipt Date: 20060803
  Transmission Date: 20061208
  Serious: Yes (Hospitalization)
  Sender: FDA-Public Use
  Company Number: 6024779

PATIENT
  Age: 71 Year
  Sex: Male

DRUGS (8)
  1. BISOPROLOL FUMARATE [Suspect]
     Indication: DRUG USE FOR UNKNOWN INDICATION
     Dosage: ORAL
     Route: 048
     Dates: end: 20060718
  2. SIMVASTATIN [Suspect]
     Indication: DRUG USE FOR UNKNOWN INDICATION
     Dosage: 0,5 DOSAGE FORMS (0,5 DOSAGE FORMS, 1 IN 1 D) ORAL
     Route: 048
     Dates: end: 20060718
  3. FUROSEMIDE [Concomitant]
  4. ZOLPIDEM TARTRATE [Concomitant]
  5. PREVISCAN (TABLET) (FLUINDIONE) [Concomitant]
  6. COVERSYL (TABLET) (PERINDOPRIL) [Concomitant]
  7. ALDACTONE [Concomitant]
  8. POTASSIUM CHLORIDE [Concomitant]

REACTIONS (2)
  - DERMATITIS EXFOLIATIVE [None]
  - PHOTOSENSITIVITY REACTION [None]
